FAERS Safety Report 11120358 (Version 1)
Quarter: 2015Q2

REPORT INFORMATION
  Report Type: Spontaneous
  Country: BR (occurrence: BR)
  Receive Date: 20150518
  Receipt Date: 20150518
  Transmission Date: 20150821
  Serious: Yes (Other)
  Sender: FDA-Public Use
  Company Number: PHHY2015BR060041

PATIENT
  Age: 32 Year
  Sex: Female
  Weight: 68 kg

DRUGS (1)
  1. VOLTAREN [Suspect]
     Active Substance: DICLOFENAC SODIUM
     Indication: SPINAL DISORDER
     Dosage: UNK, Q8H
     Route: 048
     Dates: start: 20150511, end: 20150513

REACTIONS (5)
  - Chest discomfort [Recovering/Resolving]
  - Cough [Recovering/Resolving]
  - Chest pain [Recovering/Resolving]
  - Pharyngeal oedema [Recovering/Resolving]
  - Oesophageal discomfort [Recovering/Resolving]

NARRATIVE: CASE EVENT DATE: 20150512
